FAERS Safety Report 9247674 (Version 1)
Quarter: 2013Q2

REPORT INFORMATION
  Report Type: Spontaneous
  Country: SA (occurrence: SA)
  Receive Date: 20130423
  Receipt Date: 20130423
  Transmission Date: 20140414
  Serious: Yes (Death)
  Sender: FDA-Public Use
  Company Number: PHHY2013SA039067

PATIENT
  Age: 33 Year
  Sex: Female

DRUGS (1)
  1. VOLTAREN [Suspect]
     Indication: TOOTHACHE
     Dosage: 75 MG, UNK

REACTIONS (2)
  - Death [Fatal]
  - Vomiting [Unknown]
